FAERS Safety Report 6542342-X (Version None)
Quarter: 2010Q1

REPORT INFORMATION
  Report Type: 
  Country: None (occurrence: None)
  Receive Date: 20100119
  Receipt Date: 20090529
  Transmission Date: 20100710
  Serious: No
  Sender: FDA-Public Use
  Company Number: US-TYCO HEALTHCARE/MALLINCKRODT-T200901120

PATIENT
  Age: 53 Year
  Sex: Female
  Weight: 55.782 kg

DRUGS (5)
  1. HYDROMORPHONE [Suspect]
     Indication: PAIN
     Dosage: 1 TAB Q 4-6 HRS, PRN
     Dates: start: 20080101, end: 20090101
  2. EFFEXOR [Concomitant]
     Indication: DEPRESSION
     Dosage: 2 IN AM 2 IN PM
     Route: 048
  3. LEVOTHYROXINE SODIUM [Concomitant]
     Indication: HYPOTHYROIDISM
     Dosage: 125 UG, QD
     Route: 048
  4. TRICOR [Concomitant]
     Indication: BLOOD TRIGLYCERIDES INCREASED
     Dosage: 145 MG, QD
     Route: 048
  5. RANITIDINE [Concomitant]
     Indication: GASTROOESOPHAGEAL REFLUX DISEASE
     Dosage: 300 MG, QD (QHS)
     Route: 048

REACTIONS (9)
  - ASTHENIA [None]
  - CONTUSION [None]
  - HEADACHE [None]
  - NAUSEA [None]
  - PRURITUS [None]
  - SCAR [None]
  - SCRATCH [None]
  - SKIN HAEMORRHAGE [None]
  - SOMNOLENCE [None]
